FAERS Safety Report 24326299 (Version 1)
Quarter: 2024Q3

REPORT INFORMATION
  Report Type: Report from Study
  Country: CA (occurrence: None)
  Receive Date: 20240917
  Receipt Date: 20240917
  Transmission Date: 20241017
  Serious: Yes (Hospitalization)
  Sender: ASTRAZENECA
  Company Number: 2024A209816

PATIENT
  Sex: Female

DRUGS (7)
  1. TEZSPIRE [Suspect]
     Active Substance: TEZEPELUMAB-EKKO
     Indication: Asthma
     Dosage: 210.0MG UNKNOWN
     Route: 058
     Dates: start: 20230801
  2. PREDNISONE [Concomitant]
     Active Substance: PREDNISONE
     Dosage: 7.5MG DIE,
     Dates: start: 2020
  3. ATROVENT [Concomitant]
     Active Substance: IPRATROPIUM BROMIDE
     Dosage: 20MCG 2 INH 4X PRN,
  4. ZENHALE [Concomitant]
     Active Substance: FORMOTEROL FUMARATE\MOMETASONE FUROATE
     Dosage: 200/5MCG 2 INH. BID
     Dates: start: 202003
  5. SPIRIVA RESPIMAT [Concomitant]
     Active Substance: TIOTROPIUM BROMIDE
     Dosage: 2.5MCG 2 INH. DIE
     Dates: start: 202003
  6. ALVESCO [Concomitant]
     Active Substance: CICLESONIDE
     Dosage: 200MCG 1 INH. DIE
     Dates: start: 202003
  7. ALBUTEROL [Concomitant]
     Active Substance: ALBUTEROL
     Dosage: 100MCG 2 INH. 4X
     Dates: start: 202003

REACTIONS (1)
  - Viral infection [Unknown]
